FAERS Safety Report 8514235-X (Version None)
Quarter: 2012Q3

REPORT INFORMATION
  Report Type: 
  Country: None (occurrence: None)
  Receive Date: 20120717
  Receipt Date: 20120628
  Transmission Date: 20120928
  Serious: Yes (Death, Other)
  Sender: FDA-Public Use
  Company Number: JP-009507513-1204USA03501

PATIENT

DRUGS (3)
  1. MICARDIS [Concomitant]
     Dates: start: 20100721, end: 20111227
  2. SITAGLIPTIN PHOSPHATE [Suspect]
     Indication: TYPE 2 DIABETES MELLITUS
     Dosage: 50 MG, QD
     Route: 048
     Dates: start: 20111004, end: 20111227
  3. ADALAT [Concomitant]
     Dates: start: 20100721, end: 20111227

REACTIONS (2)
  - GASTRIC CANCER [None]
  - SEPSIS [None]
